FAERS Safety Report 6665758-X (Version None)
Quarter: 2010Q2

REPORT INFORMATION
  Report Type: 
  Country: None (occurrence: None)
  Receive Date: 20100401
  Receipt Date: 20100302
  Transmission Date: 20101027
  Serious: No
  Sender: FDA-Public Use
  Company Number: DL2010-0193

PATIENT
  Age: 20 Year
  Sex: Female
  Weight: 71.6683 kg

DRUGS (4)
  1. MIFEPRISTONE (MIFEPREX) [Suspect]
     Indication: ABORTION INDUCED
     Dosage: 200 MG, ORAL
     Route: 048
     Dates: start: 20090610
  2. MISOPROSTOL [Suspect]
     Dosage: 800 MCG, BUCCAL, 400 MCG VAGINAL
     Route: 002
     Dates: start: 20090611
  3. MISOPROSTOL [Suspect]
     Dosage: 800 MCG, BUCCAL, 400 MCG VAGINAL
     Route: 002
     Dates: start: 20090705
  4. DOXYCYCLINE [Concomitant]

REACTIONS (2)
  - DIZZINESS [None]
  - HAEMORRHAGE [None]
